FAERS Safety Report 10770744 (Version 2)
Quarter: 2015Q1

REPORT INFORMATION
  Report Type: Spontaneous
  Country: US (occurrence: None)
  Receive Date: 20150206
  Receipt Date: 20150206
  Transmission Date: 20150721
  Serious: No
  Sender: FDA-Public Use
  Company Number: HYP201304-000001

PATIENT
  Sex: Male
  Weight: 20.41 kg

DRUGS (3)
  1. ARGININE [Concomitant]
     Active Substance: ARGININE
  2. CYCLINEX-1 [Concomitant]
  3. RAVICTI [Suspect]
     Active Substance: GLYCEROL PHENYLBUTYRATE
     Indication: UREA CYCLE ENZYME DEFICIENCY
     Route: 048
     Dates: start: 20130318, end: 201304

REACTIONS (3)
  - Abdominal pain upper [None]
  - Fatigue [None]
  - Crying [None]

NARRATIVE: CASE EVENT DATE: 201304
